FAERS Safety Report 7216984-2 (Version None)
Quarter: 2011Q1

REPORT INFORMATION
  Report Type: 
  Country: None (occurrence: None)
  Receive Date: 20110110
  Receipt Date: 20100916
  Transmission Date: 20110831
  Serious: Yes (Other)
  Sender: FDA-Public Use
  Company Number: FR-CELGENEUS-056-21880-08100256

PATIENT
  Age: 58 Year
  Sex: Male

DRUGS (2)
  1. REVLIMID [Suspect]
     Route: 048
     Dates: start: 20071015
  2. REVLIMID [Suspect]
     Route: 048
     Dates: start: 20071112

REACTIONS (1)
  - PNEUMONIA VIRAL [None]
